FAERS Safety Report 10101377 (Version 1)
Quarter: 2014Q2

REPORT INFORMATION
  Report Type: Spontaneous
  Country: US (occurrence: US)
  Receive Date: 20140424
  Receipt Date: 20140424
  Transmission Date: 20141212
  Serious: No
  Sender: FDA-Public Use
  Company Number: US-PFIZER INC-2014113804

PATIENT
  Age: 79 Year
  Sex: Female
  Weight: 72.56 kg

DRUGS (4)
  1. LYRICA [Suspect]
     Indication: DIABETIC NEUROPATHY
     Dosage: 75 MG, 2X/DAY
     Route: 048
     Dates: end: 201404
  2. LYRICA [Suspect]
     Dosage: 75 MG, 1X/DAY
     Route: 048
     Dates: start: 201404
  3. CELEBREX [Concomitant]
     Dosage: UNK
  4. PREMPRO [Concomitant]
     Dosage: UNK

REACTIONS (1)
  - Depressed mood [Not Recovered/Not Resolved]
